FAERS Safety Report 7220915-9 (Version None)
Quarter: 2011Q1

REPORT INFORMATION
  Report Type: 
  Country: None (occurrence: None)
  Receive Date: 20110112
  Receipt Date: 20101122
  Transmission Date: 20110831
  Serious: No
  Sender: FDA-Public Use
  Company Number: A0894532A

PATIENT
  Age: 75 Year
  Sex: Male

DRUGS (4)
  1. TOPROL-XL [Concomitant]
  2. AVAPRO [Concomitant]
  3. JALYN [Suspect]
     Route: 048
  4. ANTIVERT [Concomitant]

REACTIONS (1)
  - CONDITION AGGRAVATED [None]
